FAERS Safety Report 7388901-6 (Version None)
Quarter: 2011Q2

REPORT INFORMATION
  Report Type: 
  Country: None (occurrence: None)
  Receive Date: 20110401
  Receipt Date: 20110323
  Transmission Date: 20111010
  Serious: Yes (Congenital Anomaly, Other)
  Sender: FDA-Public Use
  Company Number: BE-BAXTER-2011BH007957

PATIENT
  Sex: Male

DRUGS (5)
  1. FLUOROURACIL [Suspect]
     Indication: DRUG EXPOSURE DURING PREGNANCY
     Route: 064
  2. LOCAL IRRADIATION [Suspect]
     Indication: DRUG EXPOSURE DURING PREGNANCY
     Route: 065
  3. CYCLOPHOSPHAMIDE [Suspect]
     Indication: DRUG EXPOSURE DURING PREGNANCY
     Route: 064
  4. EPIRUBICIN HYDROCHLORIDE [Suspect]
     Indication: DRUG EXPOSURE DURING PREGNANCY
     Route: 064
  5. METHOTREXATE GENERIC [Suspect]
     Indication: DRUG EXPOSURE DURING PREGNANCY
     Route: 064

REACTIONS (6)
  - MATERNAL DRUGS AFFECTING FOETUS [None]
  - FINGER HYPOPLASIA [None]
  - CLINODACTYLY [None]
  - SYNDACTYLY [None]
  - DRUG EXPOSURE DURING PREGNANCY [None]
  - CONGENITAL FOOT MALFORMATION [None]
